FAERS Safety Report 8188750-5 (Version None)
Quarter: 2012Q1

REPORT INFORMATION
  Report Type: 
  Country: None (occurrence: None)
  Receive Date: 20120306
  Receipt Date: 20120224
  Transmission Date: 20120608
  Serious: Yes (Other)
  Sender: FDA-Public Use
  Company Number: US-FRI-1000028679

PATIENT
  Age: 59 Year
  Sex: Female

DRUGS (2)
  1. VIIBRYD [Suspect]
     Indication: DEPRESSION
  2. VIIBRYD [Suspect]
     Indication: ANXIETY
     Dosage: 20-40

REACTIONS (5)
  - CLUMSINESS [None]
  - CONFUSIONAL STATE [None]
  - ANXIETY [None]
  - CRYING [None]
  - TREMOR [None]
